FAERS Safety Report 5849894-3 (Version None)
Quarter: 2008Q3

REPORT INFORMATION
  Report Type: 
  Country: None (occurrence: None)
  Receive Date: 20080815
  Receipt Date: 20080807
  Transmission Date: 20090109
  Serious: Yes (Death)
  Sender: FDA-Public Use
  Company Number: 2008AL009269

PATIENT
  Age: 86 Year
  Sex: Female

DRUGS (9)
  1. DIGOXIN [Suspect]
     Dosage: 0.25MG, DAILY, PO
     Route: 048
  2. ALDACTONE [Concomitant]
  3. WARFARIN SODIUM [Concomitant]
  4. CARVEDILOL [Concomitant]
  5. DONEPEZIL HCL [Concomitant]
  6. CELECOXIB [Concomitant]
  7. BUMEX [Concomitant]
  8. PROTONIX [Concomitant]
  9. LEVEFLAXIN [Concomitant]

REACTIONS (4)
  - ABDOMINAL PAIN [None]
  - BLOOD GLUCOSE INCREASED [None]
  - CARDIOACTIVE DRUG LEVEL INCREASED [None]
  - RENAL FAILURE [None]
